FAERS Safety Report 4825238-0 (Version None)
Quarter: 2005Q4

REPORT INFORMATION
  Report Type: 
  Country: None (occurrence: None)
  Receive Date: 20051109
  Receipt Date: 20051109
  Transmission Date: 20060501
  Serious: Yes (Life-Threatening, Hospitalization)
  Sender: FDA-Public Use
  Company Number: None

PATIENT
  Sex: Male

DRUGS (1)
  1. VANCOMYCIN [Suspect]
     Indication: STAPHYLOCOCCAL BACTERAEMIA
     Dosage: 1 GRAM  DAILY   IV
     Route: 042
     Dates: start: 20050623, end: 20050711

REACTIONS (1)
  - CLOSTRIDIUM COLITIS [None]
